FAERS Safety Report 12873368 (Version 1)
Quarter: 2016Q4

REPORT INFORMATION
  Report Type: Spontaneous
  Country: US (occurrence: US)
  Receive Date: 20161021
  Receipt Date: 20161021
  Transmission Date: 20170207
  Serious: No
  Sender: FDA-Public Use
  Company Number: US-ALLERGAN-1520453US

PATIENT
  Age: 62 Year
  Sex: Female
  Weight: 58.96 kg

DRUGS (2)
  1. FML [Suspect]
     Active Substance: FLUOROMETHOLONE
     Indication: DACRYOSTENOSIS ACQUIRED
     Dosage: UNK UNK, BID
     Route: 047
     Dates: start: 201508, end: 201509
  2. ELIDEL [Concomitant]
     Active Substance: PIMECROLIMUS
     Indication: ECZEMA
     Dosage: UNK

REACTIONS (1)
  - Drug ineffective [Unknown]
